FAERS Safety Report 15125405 (Version 3)
Quarter: 2018Q3

REPORT INFORMATION
  Report Type: Report from Study
  Country: US (occurrence: BR)
  Receive Date: 20180710
  Receipt Date: 20180831
  Transmission Date: 20181010
  Serious: Yes (Hospitalization, Other)
  Sender: FDA-Public Use
  Company Number: US-SUNOVION-2018SUN002703

PATIENT
  Sex: Female
  Weight: 63.5 kg

DRUGS (4)
  1. RIVOTRIL [Concomitant]
     Active Substance: CLONAZEPAM
     Indication: INSOMNIA
     Dosage: 0.5 DF, QD (STARTED 5 YEARS AGO)
     Route: 048
  2. RIVOTRIL [Concomitant]
     Active Substance: CLONAZEPAM
     Indication: ANXIETY
     Dosage: 0.5 DF, QD (STARTED 5 YEARS AGO)
     Route: 048
  3. INDACATEROL AND GLYCOPYRROLATE [Suspect]
     Active Substance: GLYCOPYRROLATE\INDACATEROL MALEATE
     Indication: PULMONARY MASS
     Dosage: 1 DF (50 UG GLYCOPYRRONIUM BROMIDE, 110 UG INDACATEROL), QD (STARTED MORE THAN 1 YEAR AGO)
     Route: 055
     Dates: end: 20180625
  4. INDACATEROL AND GLYCOPYRROLATE [Suspect]
     Active Substance: GLYCOPYRROLATE\INDACATEROL MALEATE
     Indication: EMPHYSEMA

REACTIONS (15)
  - Pharyngeal oedema [Not Recovered/Not Resolved]
  - Oedema peripheral [Not Recovered/Not Resolved]
  - Device malfunction [Unknown]
  - Incorrect dose administered [Unknown]
  - Weight increased [Not Recovered/Not Resolved]
  - Swelling [Not Recovered/Not Resolved]
  - Dyspnoea [Not Recovered/Not Resolved]
  - Feeling abnormal [Unknown]
  - Abdominal distension [Unknown]
  - Skin discolouration [Not Recovered/Not Resolved]
  - Pleural effusion [Not Recovered/Not Resolved]
  - Eye swelling [Not Recovered/Not Resolved]
  - Cardiac fibrillation [Unknown]
  - Breast discomfort [Not Recovered/Not Resolved]
  - Procedural pain [Not Recovered/Not Resolved]
